FAERS Safety Report 8336898-4 (Version None)
Quarter: 2012Q2

REPORT INFORMATION
  Report Type: 
  Country: None (occurrence: None)
  Receive Date: 20120504
  Receipt Date: 20120427
  Transmission Date: 20120825
  Serious: Yes (Death)
  Sender: FDA-Public Use
  Company Number: US-UCBSA-051587

PATIENT
  Age: 68 Year
  Sex: Female

DRUGS (1)
  1. KEPPRA XR [Suspect]
     Dosage: 750 MG TABLETS

REACTIONS (1)
  - DEATH [None]
